FAERS Safety Report 7518256-5 (Version None)
Quarter: 2011Q2

REPORT INFORMATION
  Report Type: 
  Country: None (occurrence: None)
  Receive Date: 20110602
  Receipt Date: 20110519
  Transmission Date: 20111010
  Serious: Yes (Other)
  Sender: FDA-Public Use
  Company Number: US-CELGENEUS-163-21880-11043707

PATIENT
  Sex: Male

DRUGS (8)
  1. CLONAZEPAM [Concomitant]
     Indication: INSOMNIA
  2. CELEBREX [Concomitant]
     Indication: ARTHRITIS
     Dosage: 200 MILLIGRAM
     Route: 065
  3. REVLIMID [Suspect]
     Indication: MULTIPLE MYELOMA
     Dosage: 25 MILLIGRAM
     Route: 048
     Dates: start: 20100224, end: 20100623
  4. CYMBALTA [Concomitant]
     Indication: DEPRESSION
     Dosage: 30 MILLIGRAM
     Route: 065
  5. LISINOPRIL AND HYDROCHLOROTHIAZIDE [Concomitant]
     Indication: HYPERTENSION
     Dosage: 10/12.5
     Route: 065
  6. PRILOSEC [Concomitant]
     Route: 065
  7. CLONAZEPAM [Concomitant]
     Indication: ANXIETY
     Dosage: 1 MILLIGRAM
     Route: 065
  8. GABAPENTIN [Concomitant]
     Dosage: 600 MILLIGRAM
     Route: 065

REACTIONS (1)
  - UPPER LIMB FRACTURE [None]
